FAERS Safety Report 7046339-5 (Version None)
Quarter: 2010Q4

REPORT INFORMATION
  Report Type: 
  Country: None (occurrence: None)
  Receive Date: 20101014
  Receipt Date: 20101004
  Transmission Date: 20110411
  Serious: Yes (Other)
  Sender: FDA-Public Use
  Company Number: GXKR2010GB11214

PATIENT
  Age: 48 Year
  Sex: Male
  Weight: 92 kg

DRUGS (2)
  1. RAMIPRIL [Suspect]
     Indication: HYPERTENSION
     Dosage: 2.5 MG, UNK
     Route: 048
     Dates: start: 20100826, end: 20100829
  2. TRAMADOL HCL [Concomitant]
     Dosage: 50 MG, PRN
     Route: 048
     Dates: start: 20060101

REACTIONS (4)
  - CHEST DISCOMFORT [None]
  - CHEST PAIN [None]
  - COLD SWEAT [None]
  - DYSPNOEA [None]
